FAERS Safety Report 8137677-3 (Version None)
Quarter: 2012Q1

REPORT INFORMATION
  Report Type: 
  Country: None (occurrence: None)
  Receive Date: 20120215
  Receipt Date: 20120202
  Transmission Date: 20120608
  Serious: Yes (Other)
  Sender: FDA-Public Use
  Company Number: US-MYLANLABS-2012S1003037

PATIENT
  Sex: Female

DRUGS (2)
  1. DIGOXIN [Suspect]
     Indication: HEART RATE
     Route: 048
     Dates: start: 20040415, end: 20070606
  2. DIGOXIN [Suspect]
     Indication: CARDIAC FAILURE CONGESTIVE
     Route: 048
     Dates: start: 20040415, end: 20070606

REACTIONS (7)
  - PAIN [None]
  - ARTHRALGIA [None]
  - OSTEOARTHRITIS [None]
  - LOOSE BODY IN JOINT [None]
  - RENAL FAILURE [None]
  - JOINT CREPITATION [None]
  - GALLBLADDER ENLARGEMENT [None]
